FAERS Safety Report 9238651 (Version 5)
Quarter: 2014Q2

REPORT INFORMATION
  Report Type: Spontaneous
  Country: TR (occurrence: TR)
  Receive Date: 20130418
  Receipt Date: 20140515
  Transmission Date: 20141212
  Serious: Yes (Life-Threatening, Hospitalization)
  Sender: FDA-Public Use
  Company Number: TR-ROCHE-1214520

PATIENT
  Age: 37 Year
  Sex: Female
  Weight: 65 kg

DRUGS (7)
  1. XOLAIR [Suspect]
     Indication: ASTHMA
     Route: 058
     Dates: start: 20120402
  2. XOLAIR [Suspect]
     Route: 058
     Dates: start: 20130402
  3. XOLAIR [Suspect]
     Route: 058
  4. PULMICORT [Concomitant]
  5. XYZAL [Concomitant]
  6. RANITIDINE [Concomitant]
  7. FEXOFENADINE [Concomitant]

REACTIONS (1)
  - Anaphylactic reaction [Recovered/Resolved]
